FAERS Safety Report 8580021-8 (Version None)
Quarter: 2012Q2

REPORT INFORMATION
  Report Type: 
  Country: None (occurrence: None)
  Receive Date: 20120423
  Receipt Date: 20100810
  Transmission Date: 20120825
  Serious: Yes (Hospitalization)
  Sender: FDA-Public Use
  Company Number: PHHY2010US53377

PATIENT
  Age: 58 Year
  Sex: Male
  Weight: 93.2 kg

DRUGS (9)
  1. TYLENOL #3 (PARACETAMOL) [Concomitant]
  2. BLOOD TRANSFUSION, AUXILIARY PRODUCTS (NO INGREDIENTS/SUBSTANCES) [Concomitant]
  3. FOLIC ACID [Concomitant]
  4. RED BLOOD CELLS, CONCENTRATED (RED BLOOD CELLS, CONCENTRATED) [Concomitant]
  5. HYDREA [Concomitant]
  6. EXJADE [Suspect]
     Indication: SICKLE CELL ANAEMIA
     Dosage: 2000 MG DAILY, ORAL ; 1500 MG, QD, ORAL
     Route: 048
     Dates: start: 20100507
  7. EXJADE [Suspect]
     Indication: BLOOD IRON INCREASED
     Dosage: 2000 MG DAILY, ORAL ; 1500 MG, QD, ORAL
     Route: 048
     Dates: start: 20100507
  8. EXJADE [Suspect]
     Indication: SICKLE CELL ANAEMIA
     Dosage: 2000 MG DAILY, ORAL ; 1500 MG, QD, ORAL
     Route: 048
     Dates: start: 20100414, end: 20100809
  9. EXJADE [Suspect]
     Indication: BLOOD IRON INCREASED
     Dosage: 2000 MG DAILY, ORAL ; 1500 MG, QD, ORAL
     Route: 048
     Dates: start: 20100414, end: 20100809

REACTIONS (3)
  - ABDOMINAL PAIN [None]
  - SICKLE CELL ANAEMIA WITH CRISIS [None]
  - CHEST PAIN [None]
